FAERS Safety Report 8401566-7 (Version None)
Quarter: 2012Q2

REPORT INFORMATION
  Report Type: 
  Country: None (occurrence: None)
  Receive Date: 20120601
  Receipt Date: 20120528
  Transmission Date: 20120825
  Serious: Yes (Other)
  Sender: FDA-Public Use
  Company Number: PHHY2012JP045273

PATIENT
  Age: 71 Year
  Sex: Female

DRUGS (3)
  1. PREDNISOLONE [Suspect]
     Indication: RHEUMATOID ARTHRITIS
     Dosage: 5 MG, UNK
  2. CYCLOSPORINE [Suspect]
     Indication: RHEUMATOID ARTHRITIS
     Route: 048
  3. TACROLIMUS [Suspect]
     Indication: RHEUMATOID ARTHRITIS

REACTIONS (5)
  - SKIN PAPILLOMA [None]
  - SKIN PLAQUE [None]
  - RASH [None]
  - BOWENOID PAPULOSIS [None]
  - RASH PAPULAR [None]
